FAERS Safety Report 4332087-9 (Version None)
Quarter: 2004Q1

REPORT INFORMATION
  Report Type: 
  Country: None (occurrence: None)
  Receive Date: 20040331
  Receipt Date: 20040322
  Transmission Date: 20041129
  Serious: Yes (Other)
  Sender: FDA-Public Use
  Company Number: CA-SHR-04-022965

PATIENT

DRUGS (5)
  1. FLUDARA [Suspect]
     Indication: CHRONIC LYMPHOCYTIC LEUKAEMIA
     Dosage: 40 MG/M2, DAY 1-3 CYCLE, ORAL
     Route: 048
     Dates: start: 19960101, end: 19960101
  2. FLUDARA [Suspect]
     Indication: CHRONIC LYMPHOCYTIC LEUKAEMIA
     Dosage: 40 MG/M2, DAY 1-3 CYCLE, ORAL
     Route: 048
  3. ALLOPURINOL [Suspect]
  4. CYCLOPHOSPHAMIDE [Concomitant]
  5. VALTREX [Concomitant]

REACTIONS (5)
  - HEPATIC FAILURE [None]
  - HYPERSENSITIVITY [None]
  - RENAL IMPAIRMENT [None]
  - SEPSIS [None]
  - WHITE BLOOD CELL COUNT DECREASED [None]
